FAERS Safety Report 8307628-7 (Version None)
Quarter: 2012Q2

REPORT INFORMATION
  Report Type: 
  Country: None (occurrence: None)
  Receive Date: 20120424
  Receipt Date: 20120418
  Transmission Date: 20120825
  Serious: Yes (Hospitalization, Other)
  Sender: FDA-Public Use
  Company Number: FR-PFIZER INC-2012095615

PATIENT
  Age: 86 Year
  Sex: Female

DRUGS (6)
  1. FERROUS SULFATE TAB [Concomitant]
     Dosage: UNK
     Dates: start: 20111210
  2. REPAGLINIDE [Concomitant]
     Dosage: UNK
  3. ALLOPURINOL [Suspect]
     Dosage: 100 MG, 1X/DAY
     Route: 048
     Dates: end: 20120315
  4. LASIX [Suspect]
     Dosage: 20 MG, 1X/DAY
     Route: 048
     Dates: start: 20110101, end: 20120315
  5. FOSINOPRIL SODIUM [Suspect]
     Dosage: 10 MG, 1X/DAY
     Route: 048
     Dates: start: 20120123, end: 20120315
  6. ATORVASTATIN [Suspect]
     Dosage: 10 MG, 1X/DAY
     Route: 048
     Dates: start: 20120123, end: 20120315

REACTIONS (7)
  - MYALGIA [None]
  - NEPHROPATHY [None]
  - C-REACTIVE PROTEIN INCREASED [None]
  - RENAL FAILURE ACUTE [None]
  - INFLAMMATION [None]
  - GENERAL PHYSICAL HEALTH DETERIORATION [None]
  - COUGH [None]
